FAERS Safety Report 5047241-0 (Version None)
Quarter: 2006Q3

REPORT INFORMATION
  Report Type: 
  Country: None (occurrence: None)
  Receive Date: 20060703
  Receipt Date: 20060621
  Transmission Date: 20061208
  Serious: Yes (Hospitalization)
  Sender: FDA-Public Use
  Company Number: 2006026178

PATIENT
  Age: 61 Year
  Sex: Female
  Weight: 66.2252 kg

DRUGS (15)
  1. SUTENT [Suspect]
     Indication: RENAL CELL CARCINOMA STAGE UNSPECIFIED
     Dosage: SEE IMAGE, ORAL
     Route: 048
     Dates: start: 20051027, end: 20051115
  2. SUTENT [Suspect]
     Indication: RENAL CELL CARCINOMA STAGE UNSPECIFIED
     Dosage: SEE IMAGE, ORAL
     Route: 048
     Dates: start: 20051208, end: 20060104
  3. SUTENT [Suspect]
     Indication: RENAL CELL CARCINOMA STAGE UNSPECIFIED
     Dosage: SEE IMAGE, ORAL
     Route: 048
     Dates: start: 20060119, end: 20060216
  4. OXYCONTIN [Concomitant]
  5. ARANESP [Concomitant]
  6. FLUCONAZOLE [Concomitant]
  7. PROTONIX [Concomitant]
  8. ALUMINUM HYDROXIDE AND MAGNESIUM TRISILICATE [Concomitant]
  9. PREMARIN [Concomitant]
  10. CREON [Concomitant]
  11. AMBIEN [Concomitant]
  12. AVALIDE [Concomitant]
  13. ZOLOFT [Concomitant]
  14. XANAX [Concomitant]
  15. LORTAB [Concomitant]

REACTIONS (6)
  - MALAISE [None]
  - NAUSEA [None]
  - PHARYNGOLARYNGEAL PAIN [None]
  - PNEUMONIA [None]
  - VOMITING [None]
  - WHITE BLOOD CELL COUNT DECREASED [None]
